FAERS Safety Report 11953910 (Version 2)
Quarter: 2016Q1

REPORT INFORMATION
  Report Type: Spontaneous
  Country: AU (occurrence: AU)
  Receive Date: 20160125
  Receipt Date: 20160308
  Transmission Date: 20160526
  Serious: Yes (Other)
  Sender: FDA-Public Use
  Company Number: AU-AMGEN-AUSSP2015141087

PATIENT
  Age: 62 Year
  Sex: Male

DRUGS (6)
  1. FOLIC ACID. [Concomitant]
     Active Substance: FOLIC ACID
     Dosage: 5 MG, UNK
  2. ARTHREXIN [Concomitant]
     Active Substance: INDOMETHACIN
     Dosage: 25 MG, UNK
  3. NAPROXEN. [Concomitant]
     Active Substance: NAPROXEN
     Dosage: 500 MG, UNK
  4. ENBREL [Suspect]
     Active Substance: ETANERCEPT
     Indication: RHEUMATOID ARTHRITIS
     Dosage: 50 MG, WEEKLY
     Route: 065
     Dates: start: 20150914
  5. MINAX                              /00376902/ [Concomitant]
     Dosage: 50 MG, DAILY
  6. PREDNISOLONE. [Concomitant]
     Active Substance: PREDNISOLONE
     Dosage: 5-10 MG INTERMITTENTLY FOR STRONG FLARE-UPS

REACTIONS (8)
  - Hypotrichosis [Unknown]
  - Hair texture abnormal [Unknown]
  - Bursa disorder [Recovered/Resolved]
  - Skin texture abnormal [Unknown]
  - Rheumatoid arthritis [Unknown]
  - Rheumatoid nodule [Recovering/Resolving]
  - Alopecia [Recovering/Resolving]
  - Condition aggravated [Unknown]

NARRATIVE: CASE EVENT DATE: 201512
